FAERS Safety Report 4999850-2 (Version None)
Quarter: 2006Q2

REPORT INFORMATION
  Report Type: 
  Country: None (occurrence: None)
  Receive Date: 20060510
  Receipt Date: 20060510
  Transmission Date: 20061013
  Serious: Yes (Hospitalization)
  Sender: FDA-Public Use
  Company Number: None

PATIENT
  Age: 26 Year
  Sex: Female
  Weight: 58.9676 kg

DRUGS (1)
  1. ACETAMINOPHEN W/ CODEINE NO. 3 [Suspect]
     Indication: SKIN LACERATION
     Dosage: TWO TABLETS THREE TIMES A DAY PO
     Route: 048
     Dates: start: 20060509, end: 20060509

REACTIONS (2)
  - PRURITUS [None]
  - RASH [None]
